FAERS Safety Report 5223730-0 (Version None)
Quarter: 2007Q1

REPORT INFORMATION
  Report Type: 
  Country: None (occurrence: None)
  Receive Date: 20070130
  Receipt Date: 20070118
  Transmission Date: 20070707
  Serious: Yes (Death, Hospitalization)
  Sender: FDA-Public Use
  Company Number: US-PFIZER INC-2006110198

PATIENT
  Sex: Female

DRUGS (2)
  1. SUTENT [Suspect]
     Indication: INFLAMMATORY CARCINOMA OF THE BREAST
     Route: 048
     Dates: start: 20060524, end: 20060621
  2. LOMOTIL [Suspect]

REACTIONS (6)
  - BREAST CANCER [None]
  - DECREASED APPETITE [None]
  - DIARRHOEA [None]
  - HEPATIC FUNCTION ABNORMAL [None]
  - HYPOVOLAEMIA [None]
  - MALIGNANT NEOPLASM PROGRESSION [None]
